FAERS Safety Report 4282029-X (Version None)
Quarter: 2004Q1

REPORT INFORMATION
  Report Type: 
  Country: None (occurrence: None)
  Receive Date: 20040128
  Receipt Date: 20040112
  Transmission Date: 20041129
  Serious: Yes (Hospitalization)
  Sender: FDA-Public Use
  Company Number: FRWYE293211SEP03

PATIENT
  Age: 69 Year
  Sex: Male

DRUGS (6)
  1. BISOPROLOL FUMARATE [Suspect]
     Indication: HYPERTENSION
     Dosage: ORAL
     Route: 048
     Dates: end: 20030101
  2. COZAAR [Suspect]
     Indication: HYPERTENSION
     Dosage: ORAL
     Route: 048
     Dates: start: 20030520, end: 20030101
  3. DICLOFENAC SODIUM [Suspect]
     Dosage: ORAL
     Route: 048
     Dates: start: 20030717, end: 20030101
  4. ALLOPURINOL [Concomitant]
  5. AMLODIPINE BESYLATE [Concomitant]
  6. PRAVASTATIN SODIUM [Concomitant]

REACTIONS (17)
  - ARTHRALGIA [None]
  - ASTHENIA [None]
  - ATRIAL FIBRILLATION [None]
  - CONDITION AGGRAVATED [None]
  - ELECTROCARDIOGRAM REPOLARISATION ABNORMALITY [None]
  - EOSINOPHILIA [None]
  - HEART RATE IRREGULAR [None]
  - HEPATOCELLULAR DAMAGE [None]
  - HEPATOSPLENOMEGALY [None]
  - LEUKOCYTOSIS [None]
  - PAIN [None]
  - PNEUMONITIS [None]
  - PRURITUS [None]
  - RASH PAPULAR [None]
  - RED BLOOD CELL SEDIMENTATION RATE INCREASED [None]
  - RENAL FAILURE ACUTE [None]
  - RESPIRATORY DISTRESS [None]
